FAERS Safety Report 17769131 (Version 4)
Quarter: 2020Q4

REPORT INFORMATION
  Report Type: Spontaneous
  Country: BR (occurrence: BR)
  Receive Date: 20200512
  Receipt Date: 20201014
  Transmission Date: 20210113
  Serious: Yes (Hospitalization, Other)
  Sender: FDA-Public Use
  Company Number: BR-SA-2020SA120506

PATIENT

DRUGS (15)
  1. METFORMIN [Concomitant]
     Active Substance: METFORMIN HYDROCHLORIDE
     Indication: BLOOD INSULIN
     Dosage: 3 DF, QD, TO TRANSPORT INSULIN
     Route: 048
     Dates: start: 2012
  2. TRYPTOPHAN [PYRIDOXINE HYDROCHLORIDE;TRYPTOPHAN, L-] [Concomitant]
     Active Substance: PYRIDOXINE\TRYPTOPHAN
     Indication: SLEEP DISORDER
     Dosage: 1 DF, QD AT NIGHT
     Route: 048
     Dates: start: 20200425
  3. BENICAR [Concomitant]
     Active Substance: OLMESARTAN MEDOXOMIL
     Indication: PULMONARY ARTERIAL PRESSURE
     Dosage: 1 DF, QD IN THE MORNING
     Route: 065
     Dates: start: 20131230
  4. LANTUS [Suspect]
     Active Substance: INSULIN GLARGINE
     Dosage: 34 IU
     Route: 065
  5. SIMVASTATIN. [Concomitant]
     Active Substance: SIMVASTATIN
     Indication: LOW DENSITY LIPOPROTEIN
     Dosage: 1 DF, QD AT THE NIGHT
     Route: 065
     Dates: start: 20150916
  6. SUPRA D [Concomitant]
     Indication: IMMUNODEFICIENCY
     Dosage: 1 DF AFTER LUNCH
     Route: 065
     Dates: start: 20200429
  7. PURAN [Concomitant]
     Active Substance: LEVOTHYROXINE SODIUM
     Indication: THYROIDITIS
     Dosage: 1 DF, QD IN THE MORNING
     Route: 048
     Dates: start: 1997
  8. LANTUS [Suspect]
     Active Substance: INSULIN GLARGINE
     Dosage: 5 IU, QD (AT NIGHT)
     Route: 065
  9. LANTUS [Suspect]
     Active Substance: INSULIN GLARGINE
     Dosage: 35 IU, QD
     Route: 065
  10. AAS [Concomitant]
     Active Substance: ASPIRIN
     Indication: CAROTID ARTERY DISEASE
     Dosage: 1 DF, QD IN THE MORNING
     Route: 048
     Dates: start: 20190910
  11. LANTUS [Suspect]
     Active Substance: INSULIN GLARGINE
     Indication: TYPE 1 DIABETES MELLITUS
     Dosage: UNK UNK, BID
     Route: 065
  12. LANTUS [Suspect]
     Active Substance: INSULIN GLARGINE
     Dosage: 32 IU, QD
     Route: 065
     Dates: start: 2005
  13. MAGNESIUM CHLORIDE. [Concomitant]
     Active Substance: MAGNESIUM CHLORIDE
     Indication: SUPPLEMENTATION THERAPY
     Dosage: 1 DF, QD BY VARIATION A DAY
     Route: 065
     Dates: start: 2019
  14. HUMALOG [Concomitant]
     Active Substance: INSULIN LISPRO
     Indication: TYPE 1 DIABETES MELLITUS
     Dosage: UNK, VARIES FROM FOUR TO TWO TIMES A DAY.
     Route: 065
     Dates: start: 1998
  15. DRAMIN [Concomitant]
     Active Substance: DIMENHYDRINATE
     Indication: NAUSEA
     Dosage: 1 DF, QD (NIGHT)
     Route: 048
     Dates: start: 1989

REACTIONS (6)
  - Intentional product misuse [Unknown]
  - Hypoglycaemia [Recovered/Resolved]
  - Overdose [Recovered/Resolved]
  - Hypoglycaemia [Recovered/Resolved]
  - Inappropriate schedule of product administration [Unknown]
  - Nephrolithiasis [Unknown]

NARRATIVE: CASE EVENT DATE: 2009
